FAERS Safety Report 9479238 (Version 1)
Quarter: 2013Q3

REPORT INFORMATION
  Report Type: Spontaneous
  Country: US (occurrence: GB)
  Receive Date: 20130827
  Receipt Date: 20130827
  Transmission Date: 20140515
  Serious: Yes (Other)
  Sender: FDA-Public Use
  Company Number: GB-FRI-1000047442

PATIENT
  Sex: Female

DRUGS (7)
  1. LINACLOTIDE [Suspect]
     Dosage: 290 MCG
     Route: 048
     Dates: start: 20130503, end: 20130509
  2. ASPIRIN [Concomitant]
  3. ATENOLOL [Concomitant]
  4. ISMN [Concomitant]
  5. PANTOPRAZOLE [Concomitant]
  6. LIPITOR [Concomitant]
  7. AMLODIPINE [Concomitant]

REACTIONS (1)
  - Cholelithiasis [Recovered/Resolved]
